FAERS Safety Report 10953135 (Version 1)
Quarter: 2015Q1

REPORT INFORMATION
  Report Type: Spontaneous
  Country: DE (occurrence: None)
  Receive Date: 20150323
  Receipt Date: 20150323
  Transmission Date: 20150721
  Serious: Yes (Hospitalization, Other)
  Sender: FDA-Public Use
  Company Number: DE-001555

PATIENT
  Age: 28 Year
  Sex: Female

DRUGS (2)
  1. REVESTIVE (REVESTIVE) [Suspect]
     Active Substance: TEDUGLUTIDE
     Indication: SHORT-BOWEL SYNDROME
     Dosage: (DF SUBCUTANEOUS)
     Route: 058
     Dates: start: 20141015
  2. SOLUTIONS FOR PARENTERAL NUTRITION [Concomitant]
     Active Substance: AMINO ACIDS\DEXTROSE\ELECTROLYTES NOS

REACTIONS (13)
  - Pancytopenia [None]
  - Abdominal pain upper [None]
  - Overgrowth bacterial [None]
  - Discomfort [None]
  - Diarrhoea [None]
  - Abdominal pain [None]
  - Weight increased [None]
  - Adhesion [None]
  - Hyperplasia [None]
  - Blood lactate dehydrogenase increased [None]
  - Folate deficiency [None]
  - Cholelithiasis [None]
  - Vitamin B12 deficiency [None]

NARRATIVE: CASE EVENT DATE: 2014
